FAERS Safety Report 6715486-7 (Version None)
Quarter: 2010Q2

REPORT INFORMATION
  Report Type: 
  Country: None (occurrence: None)
  Receive Date: 20100507
  Receipt Date: 20100423
  Transmission Date: 20101027
  Serious: Yes (Death, Hospitalization)
  Sender: FDA-Public Use
  Company Number: US-ROCHE-694488

PATIENT
  Sex: Female
  Weight: 63.5 kg

DRUGS (5)
  1. CAPECITABINE [Suspect]
     Indication: BREAST CANCER
     Dosage: DOSE: 1500 DAILY
     Route: 048
     Dates: start: 20091214, end: 20100217
  2. TYKERB [Suspect]
     Indication: BREAST CANCER
     Dosage: TDD: 1250
     Route: 048
     Dates: start: 20091214
  3. LISINOPRIL [Concomitant]
     Indication: HYPERTENSION
     Dosage: TDD: 10/21
     Route: 048
  4. CARVEDILOL [Concomitant]
     Indication: HYPERTENSION
     Route: 048
  5. LASIX [Concomitant]
     Indication: HYPERTENSION
     Route: 048

REACTIONS (4)
  - DECREASED APPETITE [None]
  - DIARRHOEA [None]
  - MALIGNANT NEOPLASM PROGRESSION [None]
  - RENAL FAILURE ACUTE [None]
